FAERS Safety Report 23609069 (Version 1)
Quarter: 2024Q1

REPORT INFORMATION
  Report Type: Report from Study
  Country: CA (occurrence: CA)
  Receive Date: 20240308
  Receipt Date: 20240308
  Transmission Date: 20240410
  Serious: Yes (Other)
  Sender: FDA-Public Use
  Company Number: CA-002147023-NVSC2022CA125889

PATIENT
  Age: 75 Year
  Sex: Female

DRUGS (3)
  1. HYRIMOZ [Suspect]
     Active Substance: ADALIMUMAB-ADAZ
     Indication: Colitis ulcerative
     Dosage: 160 MG
     Route: 058
     Dates: start: 20220524
  2. HYRIMOZ [Suspect]
     Active Substance: ADALIMUMAB-ADAZ
     Dosage: 40 MG, Q2W
     Route: 058
     Dates: start: 20220816, end: 202309
  3. HYRIMOZ [Suspect]
     Active Substance: ADALIMUMAB-ADAZ
     Dosage: 40 MG (PRE FILLED PEN)
     Route: 058
     Dates: start: 20220524

REACTIONS (16)
  - Neoplasm [Unknown]
  - Laryngitis [Unknown]
  - Swelling [Unknown]
  - Fluid retention [Unknown]
  - Fall [Unknown]
  - Limb injury [Unknown]
  - Balance disorder [Unknown]
  - Diarrhoea [Unknown]
  - Migraine [Unknown]
  - Cough [Unknown]
  - Abdominal pain [Unknown]
  - Vomiting [Recovering/Resolving]
  - Asthenia [Unknown]
  - Therapeutic product effect incomplete [Not Recovered/Not Resolved]
  - Drug ineffective [Unknown]
  - Discontinued product administered [Unknown]

NARRATIVE: CASE EVENT DATE: 20220527
